FAERS Safety Report 5402363-7 (Version None)
Quarter: 2007Q3

REPORT INFORMATION
  Report Type: 
  Country: None (occurrence: None)
  Receive Date: 20070730
  Receipt Date: 20070716
  Transmission Date: 20080115
  Serious: Yes (Other)
  Sender: FDA-Public Use
  Company Number: SPV1-2007-02095

PATIENT
  Age: 15 Year
  Sex: Female
  Weight: 70.3 kg

DRUGS (3)
  1. ADDERALL XR(AMPHETAMINE ASPARTATE, AMPHETAMINE SULFATE, DEXTROAMPHETAM [Suspect]
     Indication: ATTENTION DEFICIT/HYPERACTIVITY DISORDER
     Dosage: 20 MG, 1X/DAY;QD
     Dates: start: 20070101, end: 20070402
  2. ADDERALL XR(AMPHETAMINE ASPARTATE, AMPHETAMINE SULFATE, DEXTROAMPHETAM [Suspect]
     Indication: ATTENTION DEFICIT/HYPERACTIVITY DISORDER
     Dosage: 20 MG, 1X/DAY;QD
     Dates: start: 20070401
  3. MOTRIN [Concomitant]

REACTIONS (1)
  - PARESIS CRANIAL NERVE [None]
